FAERS Safety Report 10372327 (Version 2)
Quarter: 2014Q4

REPORT INFORMATION
  Report Type: Spontaneous
  Country: US (occurrence: US)
  Receive Date: 20140808
  Receipt Date: 20141106
  Transmission Date: 20150528
  Serious: Yes (Hospitalization, Other)
  Sender: FDA-Public Use
  Company Number: US-ELI_LILLY_AND_COMPANY-US201407011385

PATIENT
  Sex: Male

DRUGS (5)
  1. LISINOPRIL. [Concomitant]
     Active Substance: LISINOPRIL
     Dosage: 5 MG, UNKNOWN
     Route: 065
  2. REGLAN [Concomitant]
     Active Substance: METOCLOPRAMIDE HYDROCHLORIDE
  3. FENOFIBRATE. [Concomitant]
     Active Substance: FENOFIBRATE
  4. INSULIN HUMAN [Suspect]
     Active Substance: INSULIN HUMAN
     Indication: TYPE 2 DIABETES MELLITUS
     Dosage: UNK
     Route: 058
  5. LISINOPRIL. [Concomitant]
     Active Substance: LISINOPRIL
     Route: 065

REACTIONS (12)
  - Wound [Recovered/Resolved]
  - Weight increased [Unknown]
  - Wrong technique in drug usage process [Not Recovered/Not Resolved]
  - Retinopathy [Unknown]
  - Drug ineffective [Unknown]
  - Gangrene [Recovered/Resolved]
  - Photopsia [Not Recovered/Not Resolved]
  - Gait disturbance [Unknown]
  - Insulin resistance [Unknown]
  - Neuropathy peripheral [Unknown]
  - Renal failure [Unknown]
  - Glaucoma [Unknown]
